FAERS Safety Report 8623305-7 (Version None)
Quarter: 2012Q3

REPORT INFORMATION
  Report Type: 
  Country: None (occurrence: None)
  Receive Date: 20120827
  Receipt Date: 20120816
  Transmission Date: 20120928
  Serious: Yes (Other)
  Sender: FDA-Public Use
  Company Number: US-ELI_LILLY_AND_COMPANY-US201206007730

PATIENT
  Age: 42 Year
  Sex: Female

DRUGS (5)
  1. CYMBALTA [Suspect]
     Dosage: 30 MG, BID
     Route: 048
     Dates: end: 20120509
  2. LISINOPRIL [Concomitant]
     Dosage: 20 MG, UNKNOWN
  3. CYMBALTA [Suspect]
     Dosage: 30 MG, QD
     Route: 048
     Dates: start: 20120510, end: 20120510
  4. CYMBALTA [Suspect]
     Indication: NEURALGIA
     Dosage: 30 MG, QD
     Route: 048
     Dates: start: 20120501
  5. LORTAB [Concomitant]
     Dosage: 50 MG, UNKNOWN

REACTIONS (16)
  - BLOOD PRESSURE INCREASED [None]
  - FATIGUE [None]
  - DISORIENTATION [None]
  - FEELING ABNORMAL [None]
  - PRESYNCOPE [None]
  - HEART RATE DECREASED [None]
  - DRUG WITHDRAWAL SYNDROME [None]
  - OFF LABEL USE [None]
  - NAUSEA [None]
  - SPEECH DISORDER [None]
  - DISSOCIATION [None]
  - SOMNOLENCE [None]
  - LOSS OF CONSCIOUSNESS [None]
  - VITAL FUNCTIONS ABNORMAL [None]
  - ASTHENIA [None]
  - DIZZINESS [None]
